FAERS Safety Report 4357308-8 (Version None)
Quarter: 2004Q2

REPORT INFORMATION
  Report Type: 
  Country: None (occurrence: None)
  Receive Date: 20040507
  Receipt Date: 20040420
  Transmission Date: 20050107
  Serious: Yes (Other)
  Sender: FDA-Public Use
  Company Number: USA040465402

PATIENT
  Age: 64 Year
  Sex: Male

DRUGS (2)
  1. HUMULIN R [Suspect]
     Indication: DIABETES MELLITUS
     Dates: start: 19850101
  2. HUMULIN L [Suspect]
     Indication: DIABETES MELLITUS
     Dosage: 20 U/2 TIMES DAY
     Dates: start: 19850101

REACTIONS (3)
  - BLOOD GLUCOSE INCREASED [None]
  - EYE DISORDER [None]
  - EYE HAEMORRHAGE [None]
